FAERS Safety Report 6181144-3 (Version None)
Quarter: 2009Q2

REPORT INFORMATION
  Report Type: 
  Country: None (occurrence: None)
  Receive Date: 20090506
  Receipt Date: 20090427
  Transmission Date: 20091009
  Serious: Yes (Hospitalization, Other)
  Sender: FDA-Public Use
  Company Number: PHEH2007US13902

PATIENT
  Sex: Female
  Weight: 60.771 kg

DRUGS (12)
  1. AREDIA [Suspect]
     Indication: BREAST CANCER
  2. ZOMETA [Suspect]
     Indication: BREAST CANCER
  3. OXYCONTIN [Concomitant]
     Indication: BREAKTHROUGH PAIN
     Dosage: 20 MG IN THE MORNING, 40 MG IN THE EVENING
     Route: 048
  4. SYNTHROID [Concomitant]
     Dosage: .15 MG, QD
     Route: 048
  5. FARESTON ^LAAKEFARMOS^ [Concomitant]
     Dosage: UNK
     Route: 048
  6. RESTORIL [Concomitant]
     Route: 048
  7. TYLENOL (CAPLET) [Concomitant]
     Route: 048
  8. PERCOCET [Concomitant]
     Indication: BREAKTHROUGH PAIN
     Route: 048
  9. LASIX [Concomitant]
     Dosage: 40 MG, QD
  10. CARISOPRODOL [Concomitant]
  11. EFFEXOR [Concomitant]
     Dosage: 37.5 MG, QD
  12. AROMASIN [Concomitant]
     Indication: HORMONE REPLACEMENT THERAPY

REACTIONS (18)
  - ANHEDONIA [None]
  - ANXIETY [None]
  - BONE DISORDER [None]
  - BONE PAIN [None]
  - CENTRAL VENOUS CATHETERISATION [None]
  - CONSTIPATION [None]
  - DEFORMITY [None]
  - DISCOMFORT [None]
  - EMOTIONAL DISTRESS [None]
  - HYPOAESTHESIA [None]
  - HYPOPHAGIA [None]
  - INTERVERTEBRAL DISC DEGENERATION [None]
  - LIFE EXPECTANCY SHORTENED [None]
  - METASTASES TO BONE [None]
  - METASTASES TO LIVER [None]
  - OSTEONECROSIS [None]
  - PAIN [None]
  - PYREXIA [None]
